FAERS Safety Report 20804988 (Version 2)
Quarter: 2022Q3

REPORT INFORMATION
  Report Type: Report from Study
  Country: BY (occurrence: BY)
  Receive Date: 20220509
  Receipt Date: 20220915
  Transmission Date: 20221027
  Serious: Yes (Hospitalization)
  Sender: FDA-Public Use
  Company Number: BY-CELGENE-BLR-20220303589

PATIENT
  Age: 39 Year
  Sex: Female
  Weight: 57 kg

DRUGS (1)
  1. MESALAMINE [Concomitant]
     Active Substance: MESALAMINE
     Indication: Colitis ulcerative
     Dosage: 800 MILLIGRAM
     Route: 048
     Dates: start: 20161201

REACTIONS (1)
  - Anal fistula [Recovered/Resolved]

NARRATIVE: CASE EVENT DATE: 20220302
